FAERS Safety Report 5599211-1 (Version None)
Quarter: 2008Q1

REPORT INFORMATION
  Report Type: 
  Country: None (occurrence: None)
  Receive Date: 20080122
  Receipt Date: 20080115
  Transmission Date: 20080703
  Serious: Yes (Hospitalization)
  Sender: FDA-Public Use
  Company Number: AU-MERCK-0801AUS00095

PATIENT
  Age: 66 Year
  Sex: Female

DRUGS (4)
  1. FOSAMAX PLUS D [Suspect]
     Route: 048
     Dates: start: 20080101, end: 20080101
  2. PRAVASTATIN SODIUM [Concomitant]
     Route: 065
  3. CALCIUM CARBONATE [Concomitant]
     Route: 065
  4. FOSAMAX [Suspect]
     Route: 048
     Dates: end: 20080101

REACTIONS (1)
  - LOWER LIMB FRACTURE [None]
